FAERS Safety Report 16549098 (Version 2)
Quarter: 2019Q3

REPORT INFORMATION
  Report Type: Report from Study
  Country: US (occurrence: US)
  Receive Date: 20190709
  Receipt Date: 20190731
  Transmission Date: 20191004
  Serious: Yes (Hospitalization)
  Sender: FDA-Public Use
  Company Number: US-GILEAD-2019-0416718

PATIENT
  Age: 64 Year
  Sex: Male
  Weight: 89.7 kg

DRUGS (37)
  1. FLUDARABINE [Suspect]
     Active Substance: FLUDARABINE PHOSPHATE
     Dosage: 30
     Route: 065
     Dates: start: 20190304, end: 20190304
  2. ALLOPURINOL. [Concomitant]
     Active Substance: ALLOPURINOL
     Dosage: 300,MG,DAILY
     Route: 048
     Dates: start: 20190306, end: 20190314
  3. CIPROFLOXACIN. [Concomitant]
     Active Substance: CIPROFLOXACIN
     Dosage: 500,MG,TWICE DAILY
     Route: 048
     Dates: start: 20190307, end: 20190313
  4. DIPHENHYDRAMINE. [Concomitant]
     Active Substance: DIPHENHYDRAMINE
     Dosage: 25,MG,THREE TIMES DAILY
     Route: 041
     Dates: start: 20190307, end: 20190307
  5. ACETAMINOPHEN. [Concomitant]
     Active Substance: ACETAMINOPHEN
     Dosage: 650,MG,DAILY
     Route: 048
     Dates: start: 20190307, end: 20190307
  6. DOCUSATE;SENNA [Concomitant]
     Dosage: 1,OTHER,DAILY
     Route: 048
     Dates: start: 20190308, end: 20190309
  7. ISAVUCONAZONIUM [Concomitant]
     Active Substance: ISAVUCONAZONIUM
     Dosage: 372,MG,DAILY
     Dates: start: 20190311, end: 20190315
  8. CYCLOPHOSPHAMIDE. [Suspect]
     Active Substance: CYCLOPHOSPHAMIDE
     Indication: BONE MARROW CONDITIONING REGIMEN
     Dosage: 500
     Route: 065
     Dates: start: 20190302, end: 20190302
  9. FLUDARABINE [Suspect]
     Active Substance: FLUDARABINE PHOSPHATE
     Indication: BONE MARROW CONDITIONING REGIMEN
     Dosage: 30
     Route: 065
     Dates: start: 20190302, end: 20190302
  10. LEVETIRACETAM. [Concomitant]
     Active Substance: LEVETIRACETAM
     Dosage: 750,MG,TWICE DAILY
     Route: 048
     Dates: start: 20190316, end: 20190318
  11. LORAZEPAM. [Concomitant]
     Active Substance: LORAZEPAM
     Dosage: 0.5,MG,DAILY
     Route: 048
     Dates: start: 20190308, end: 20190309
  12. SERTRALINE [Concomitant]
     Active Substance: SERTRALINE HYDROCHLORIDE
     Dosage: 50,MG,DAILY
     Route: 048
     Dates: start: 20190306, end: 20190314
  13. OXYCODONE [Concomitant]
     Active Substance: OXYCODONE
     Dosage: 5,MG,DAILY
     Route: 048
     Dates: start: 20190316, end: 20190317
  14. CYCLOPHOSPHAMIDE. [Suspect]
     Active Substance: CYCLOPHOSPHAMIDE
     Dosage: 500
     Route: 065
     Dates: start: 20190303, end: 20190303
  15. FLUDARABINE [Suspect]
     Active Substance: FLUDARABINE PHOSPHATE
     Dosage: 30
     Route: 065
     Dates: start: 20190303, end: 20190303
  16. LEVETIRACETAM. [Concomitant]
     Active Substance: LEVETIRACETAM
     Dosage: 750,MG,DAILY
     Route: 048
     Dates: start: 20190315, end: 20190315
  17. SODIUM CHLORIDE 0.9% [Concomitant]
     Active Substance: SODIUM CHLORIDE
     Dosage: 1000,ML,DAILY
     Route: 041
     Dates: start: 20190307, end: 20190307
  18. FLUCONAZOLE. [Concomitant]
     Active Substance: FLUCONAZOLE
     Dosage: 400,MG,DAILY
     Route: 048
     Dates: start: 20190307, end: 20190309
  19. ACICLOVIR [Concomitant]
     Active Substance: ACYCLOVIR
     Dosage: 800,MG,TWICE DAILY
     Route: 048
     Dates: start: 20190307, end: 20190319
  20. MAGNESIUM SULFATE. [Concomitant]
     Active Substance: MAGNESIUM SULFATE
     Dosage: 2,G,DAILY
     Route: 041
     Dates: start: 20190313, end: 20190314
  21. LORAZEPAM. [Concomitant]
     Active Substance: LORAZEPAM
     Dosage: 0.5,MG,DAILY
     Route: 048
     Dates: start: 20190306, end: 20190306
  22. ALLOPURINOL. [Concomitant]
     Active Substance: ALLOPURINOL
     Dosage: 300,MG,DAILY
     Route: 048
     Dates: start: 20190318, end: 20190318
  23. ISAVUCONAZONIUM [Concomitant]
     Active Substance: ISAVUCONAZONIUM
     Dosage: 372,MG,THREE TIMES DAILY
     Route: 048
     Dates: start: 20190309, end: 20190310
  24. LEVETIRACETAM. [Concomitant]
     Active Substance: LEVETIRACETAM
     Dosage: 750,MG,TWICE DAILY
     Route: 048
     Dates: start: 20190306, end: 20190314
  25. DIPHENHYDRAMINE. [Concomitant]
     Active Substance: DIPHENHYDRAMINE
     Dosage: 25,MG,DAILY
     Route: 048
     Dates: start: 20190308, end: 20190309
  26. OXYCODONE [Concomitant]
     Active Substance: OXYCODONE
     Dosage: 10,MG,FOUR TIMES DAILY
     Route: 048
     Dates: start: 20190313, end: 20190313
  27. AXICABTAGENE CILOLEUCEL [Suspect]
     Active Substance: AXICABTAGENE CILOLEUCEL
     Indication: ACUTE LYMPHOCYTIC LEUKAEMIA
     Dosage: UNK
     Route: 065
     Dates: start: 20190307, end: 20190307
  28. LORAZEPAM. [Concomitant]
     Active Substance: LORAZEPAM
     Dosage: 0.5,MG,DAILY
     Route: 048
     Dates: start: 20190312, end: 20190314
  29. ONDANSETRON [Concomitant]
     Active Substance: ONDANSETRON
     Dosage: 8,MG,DAILY
     Route: 041
     Dates: start: 20190308, end: 20190309
  30. SERTRALINE [Concomitant]
     Active Substance: SERTRALINE HYDROCHLORIDE
     Dosage: 50,MG,DAILY
     Route: 048
     Dates: start: 20190316, end: 20190319
  31. ACETAMINOPHEN. [Concomitant]
     Active Substance: ACETAMINOPHEN
     Dosage: 650,MG,TWICE DAILY
     Route: 048
     Dates: start: 20190316, end: 20190319
  32. OXYCODONE [Concomitant]
     Active Substance: OXYCODONE
     Dosage: 10,MG,DAILY
     Route: 048
     Dates: start: 20190307, end: 20190307
  33. CYCLOPHOSPHAMIDE. [Suspect]
     Active Substance: CYCLOPHOSPHAMIDE
     Dosage: 500
     Route: 065
     Dates: start: 20190304, end: 20190304
  34. LEVETIRACETAM. [Concomitant]
     Active Substance: LEVETIRACETAM
     Dosage: 750,MG,DAILY
     Route: 048
     Dates: start: 20190319, end: 20190319
  35. ONDANSETRON [Concomitant]
     Active Substance: ONDANSETRON
     Dosage: 8,MG,DAILY
     Route: 041
     Dates: start: 20190306, end: 20190306
  36. MAGNESIUM SULFATE. [Concomitant]
     Active Substance: MAGNESIUM SULFATE
     Dosage: 2,G,DAILY
     Route: 041
     Dates: start: 20190308, end: 20190308
  37. MAGNESIUM SULFATE. [Concomitant]
     Active Substance: MAGNESIUM SULFATE
     Dosage: 2,G,DAILY
     Route: 041
     Dates: start: 20190317, end: 20190317

REACTIONS (6)
  - Hypogammaglobulinaemia [Not Recovered/Not Resolved]
  - Neutrophil count decreased [Recovered/Resolved]
  - Headache [Recovered/Resolved]
  - Cytokine release syndrome [Recovered/Resolved]
  - Embolism [Recovering/Resolving]
  - Pyrexia [Recovered/Resolved]

NARRATIVE: CASE EVENT DATE: 20190312
